FAERS Safety Report 9412404 (Version 1)
Quarter: 2013Q3

REPORT INFORMATION
  Report Type: Report from Study
  Country: PL (occurrence: PL)
  Receive Date: 20130722
  Receipt Date: 20130722
  Transmission Date: 20140515
  Serious: Yes (Hospitalization)
  Sender: FDA-Public Use
  Company Number: PL-UCBSA-091877

PATIENT
  Age: 59 Year
  Sex: Female
  Weight: 110 kg

DRUGS (1)
  1. CERTOLIZUMAB PEGOL [Suspect]

REACTIONS (1)
  - Sepsis [Recovered/Resolved]
